FAERS Safety Report 9543377 (Version 1)
Quarter: 2013Q2

REPORT INFORMATION
  Report Type: Spontaneous
  Country: US (occurrence: None)
  Receive Date: 20130524
  Receipt Date: 20130524
  Transmission Date: 20140414
  Serious: Yes (Other)
  Sender: FDA-Public Use
  Company Number: PHEH2013US004118

PATIENT
  Age: 55 Year
  Sex: Female

DRUGS (1)
  1. GILENYA [Suspect]
     Indication: MULTIPLE SCLEROSIS
     Route: 048
     Dates: start: 20110819

REACTIONS (13)
  - Bronchitis [None]
  - Nasopharyngitis [None]
  - White blood cell count decreased [None]
  - Pain [None]
  - Pyrexia [None]
  - Nasal congestion [None]
  - Dysphonia [None]
  - Oropharyngeal pain [None]
  - Pharyngitis [None]
  - Head discomfort [None]
  - Headache [None]
  - Malaise [None]
  - Cough [None]
